FAERS Safety Report 14348850 (Version 1)
Quarter: 2018Q1

REPORT INFORMATION
  Report Type: Spontaneous
  Country: FR (occurrence: FR)
  Receive Date: 20180104
  Receipt Date: 20180104
  Transmission Date: 20180509
  Serious: Yes (Death, Hospitalization)
  Sender: FDA-Public Use
  Company Number: FR-CONCORDIA PHARMACEUTICALS INC.-GSH201801-000008

PATIENT
  Age: 70 Year
  Sex: Male

DRUGS (15)
  1. LANTUS [Suspect]
     Active Substance: INSULIN GLARGINE
     Indication: KETOSIS-PRONE DIABETES MELLITUS
     Route: 058
     Dates: end: 20171020
  2. BACTRIM [Suspect]
     Active Substance: SULFAMETHOXAZOLE\TRIMETHOPRIM
     Indication: PRODUCT USED FOR UNKNOWN INDICATION
     Route: 048
     Dates: end: 20171020
  3. ONDANSETRON ACCORD [Suspect]
     Active Substance: ONDANSETRON
     Indication: PREMEDICATION
     Route: 042
     Dates: start: 20171019, end: 20171019
  4. SKENAN [Suspect]
     Active Substance: MORPHINE SULFATE
     Indication: PAIN
     Route: 048
     Dates: end: 20171020
  5. DEROXAT [Suspect]
     Active Substance: PAROXETINE HYDROCHLORIDE
     Indication: PRODUCT USED FOR UNKNOWN INDICATION
     Route: 048
     Dates: start: 20171006, end: 20171020
  6. ALFUZOSIN [Suspect]
     Active Substance: ALFUZOSIN
     Indication: BENIGN PROSTATIC HYPERPLASIA
     Route: 048
     Dates: end: 20171020
  7. ENDOXAN [Suspect]
     Active Substance: CYCLOPHOSPHAMIDE
     Indication: INTERSTITIAL LUNG DISEASE
     Route: 042
     Dates: start: 20171019, end: 20171019
  8. PREDNISOLONE. [Suspect]
     Active Substance: PREDNISOLONE
     Indication: HYPERTENSION
     Route: 048
     Dates: end: 20171020
  9. MESNA. [Suspect]
     Active Substance: MESNA
     Indication: PREMEDICATION
     Route: 042
     Dates: start: 20171019, end: 20171019
  10. BISOPROLOL FUMARATE. [Suspect]
     Active Substance: BISOPROLOL FUMARATE
     Indication: HYPERTENSION
     Route: 048
     Dates: end: 20171020
  11. VENTOLINE [Suspect]
     Active Substance: ALBUTEROL
     Indication: PRODUCT USED FOR UNKNOWN INDICATION
     Dates: end: 20171020
  12. NOVORAPID [Suspect]
     Active Substance: INSULIN ASPART
     Indication: KETOSIS-PRONE DIABETES MELLITUS
     Route: 058
     Dates: end: 20171020
  13. PERINDOPRIL ERBUMINE. [Suspect]
     Active Substance: PERINDOPRIL ERBUMINE
     Indication: HYPERTENSION
     Route: 048
     Dates: end: 20171020
  14. ELIQUIS [Suspect]
     Active Substance: APIXABAN
     Indication: CARDIAC FLUTTER
     Route: 048
     Dates: start: 20171006, end: 20171020
  15. ALPRAZOLAM. [Suspect]
     Active Substance: ALPRAZOLAM
     Indication: PRODUCT USED FOR UNKNOWN INDICATION
     Route: 048
     Dates: end: 20171020

REACTIONS (1)
  - Cardio-respiratory arrest [Fatal]

NARRATIVE: CASE EVENT DATE: 20171020
